FAERS Safety Report 9173364 (Version 1)
Quarter: 2013Q1

REPORT INFORMATION
  Report Type: Spontaneous
  Country: GB (occurrence: None)
  Receive Date: 20130314
  Receipt Date: 20130314
  Transmission Date: 20140127
  Serious: Yes (Hospitalization, Other)
  Sender: FDA-Public Use
  Company Number: AUR-APL-2013-01976

PATIENT
  Age: 68 Year
  Sex: Male

DRUGS (3)
  1. SIMVASTATIN (SIMVASTATIN) [Suspect]
     Indication: TRANSIENT ISCHAEMIC ATTACK
     Dosage: (20 MG, 1 IN 1 D) ORAL
     Route: 048
     Dates: start: 20101201
  2. ASASANTIN RETARD (DIPYRIDAMOLE) [Concomitant]
  3. CLOPIDOGREL (CLOPIDOGREL) [Concomitant]

REACTIONS (2)
  - Hypoaesthesia [None]
  - Loss of control of legs [None]
